FAERS Safety Report 19205277 (Version 1)
Quarter: 2021Q2

REPORT INFORMATION
  Report Type: Spontaneous
  Country: US (occurrence: US)
  Receive Date: 20210502
  Receipt Date: 20210502
  Transmission Date: 20210717
  Serious: Yes (Other)
  Sender: FDA-Public Use
  Company Number: None

PATIENT
  Age: 57 Year
  Sex: Female
  Weight: 58.5 kg

DRUGS (2)
  1. BRIMONIDINE TARTRATE OPHTHAMLIC SOLUTION [Suspect]
     Active Substance: BRIMONIDINE TARTRATE
     Indication: GLAUCOMA
     Route: 047
  2. LATANOPROST OPHTHALMIC SOLUTION 0.005% STERILE 125MCG/2.5ML [Suspect]
     Active Substance: LATANOPROST
     Indication: GLAUCOMA
     Route: 047
     Dates: start: 20191119, end: 20210111

REACTIONS (4)
  - Periorbital fat atrophy [None]
  - Dark circles under eyes [None]
  - Dyschromatopsia [None]
  - Scleral disorder [None]

NARRATIVE: CASE EVENT DATE: 20191230
